FAERS Safety Report 5449090-8 (Version None)
Quarter: 2007Q3

REPORT INFORMATION
  Report Type: 
  Country: None (occurrence: None)
  Receive Date: 20070911
  Receipt Date: 20070830
  Transmission Date: 20080115
  Serious: Yes (Other)
  Sender: FDA-Public Use
  Company Number: JP-SANOFI-SYNTHELABO-A01200709898

PATIENT
  Age: 28 Year
  Sex: Female

DRUGS (1)
  1. PENTAGIN [Suspect]
     Indication: PAIN
     Dosage: UNK
     Route: 008

REACTIONS (2)
  - DECREASED APPETITE [None]
  - DRUG EXPOSURE DURING PREGNANCY [None]
